FAERS Safety Report 23564324 (Version 1)
Quarter: 2024Q1

REPORT INFORMATION
  Report Type: Other
  Country: GB (occurrence: GB)
  Receive Date: 20240226
  Receipt Date: 20240226
  Transmission Date: 20240409
  Serious: Yes (Other)
  Sender: FDA-Public Use
  Company Number: GB-MACLEODS PHARMA EU LTD-MAC2024045965

PATIENT

DRUGS (1)
  1. ARIPIPRAZOLE [Suspect]
     Active Substance: ARIPIPRAZOLE
     Indication: Psychotic disorder
     Dosage: 5 MILLIGRAM, BID
     Route: 065
     Dates: start: 202311

REACTIONS (1)
  - Hypoprolactinaemia [Not Recovered/Not Resolved]

NARRATIVE: CASE EVENT DATE: 20231101
